FAERS Safety Report 8469503-7 (Version None)
Quarter: 2012Q2

REPORT INFORMATION
  Report Type: 
  Country: None (occurrence: None)
  Receive Date: 20120626
  Receipt Date: 20120621
  Transmission Date: 20120825
  Serious: Yes (Other)
  Sender: FDA-Public Use
  Company Number: CHPA2012US011477

PATIENT
  Age: 60 Year
  Sex: Female

DRUGS (1)
  1. VOLTAREN [Suspect]
     Indication: NERVE INJURY
     Dosage: 2 G, QID
     Route: 061
     Dates: start: 20110101

REACTIONS (8)
  - CEREBROVASCULAR ACCIDENT [None]
  - HEMIPLEGIA [None]
  - NERVE INJURY [None]
  - INSOMNIA [None]
  - CONDITION AGGRAVATED [None]
  - OFF LABEL USE [None]
  - THERAPEUTIC RESPONSE UNEXPECTED [None]
  - CEREBRAL THROMBOSIS [None]
